FAERS Safety Report 15886245 (Version 2)
Quarter: 2019Q1

REPORT INFORMATION
  Report Type: Not Available
  Country: US (occurrence: US)
  Receive Date: 20190129
  Receipt Date: 20190218
  Transmission Date: 20190417
  Serious: Yes (Death, Other)
  Sender: FDA-Public Use
  Company Number: US-NEUROCRINE BIOSCIENCES INC.-2019NBI00286

PATIENT
  Sex: Male

DRUGS (1)
  1. INGREZZA [Suspect]
     Active Substance: VALBENAZINE
     Indication: TARDIVE DYSKINESIA
     Route: 048
     Dates: start: 20181229

REACTIONS (5)
  - Respiratory failure [Fatal]
  - Emotional distress [Unknown]
  - Haemorrhage intracranial [Unknown]
  - Pneumonia aspiration [Fatal]
  - Cardiovascular disorder [Unknown]
